FAERS Safety Report 16619571 (Version 1)
Quarter: 2019Q3

REPORT INFORMATION
  Report Type: Spontaneous
  Country: JP (occurrence: JP)
  Receive Date: 20190723
  Receipt Date: 20190723
  Transmission Date: 20191004
  Serious: Yes (Other)
  Sender: FDA-Public Use
  Company Number: JP-MYLANLABS-2019M1066885

PATIENT
  Age: 63 Year
  Sex: Female
  Weight: 69.8 kg

DRUGS (11)
  1. ETOPOSIDE. [Suspect]
     Active Substance: ETOPOSIDE
     Indication: SMALL CELL LUNG CANCER EXTENSIVE STAGE
     Dosage: 175MG/BODY 15 TIMES (5 COURSE, 3 TIMES)
     Route: 065
     Dates: start: 20180926
  2. FILGRASTIM [Suspect]
     Active Substance: FILGRASTIM
     Indication: SMALL CELL LUNG CANCER EXTENSIVE STAGE
     Route: 065
  3. ERYTHROCIN [Suspect]
     Active Substance: ERYTHROMYCIN LACTOBIONATE
     Indication: PRODUCT USED FOR UNKNOWN INDICATION
     Route: 065
  4. IRINOTECAN [Suspect]
     Active Substance: IRINOTECAN
     Indication: SMALL CELL LUNG CANCER EXTENSIVE STAGE
     Dosage: 94MG/BODY ,18 TIMES (6COURSE, 3 TIMES)
     Route: 065
     Dates: start: 20170606
  5. CALSED [Suspect]
     Active Substance: AMRUBICIN HYDROCHLORIDE
     Indication: SMALL CELL LUNG CANCER EXTENSIVE STAGE
     Dosage: 67MG/BODY, 12 TIMES (4 COURSE, 3 TIMES)
     Route: 065
     Dates: start: 20180307
  6. NEXIUM [Concomitant]
     Active Substance: ESOMEPRAZOLE MAGNESIUM
     Indication: PRODUCT USED FOR UNKNOWN INDICATION
     Dosage: UNK
     Route: 065
     Dates: end: 20190313
  7. LIXIANA [Concomitant]
     Active Substance: EDOXABAN TOSYLATE
     Indication: PRODUCT USED FOR UNKNOWN INDICATION
     Dosage: UNK
     Route: 065
     Dates: end: 20190313
  8. CISPLATIN. [Suspect]
     Active Substance: CISPLATIN
     Indication: SMALL CELL LUNG CANCER EXTENSIVE STAGE
     Dosage: 94MG/BODY, 6 TIMES (6 COURSE)
     Route: 065
     Dates: start: 20170606
  9. G LASTA [Suspect]
     Active Substance: PEGFILGRASTIM
     Indication: SMALL CELL LUNG CANCER EXTENSIVE STAGE
     Route: 065
  10. MUCOSOLATE [Suspect]
     Active Substance: AMBROXOL HYDROCHLORIDE
     Indication: PRODUCT USED FOR UNKNOWN INDICATION
     Route: 065
  11. CARBOPLATIN INJ. 50MG ^NK^ [Suspect]
     Active Substance: CARBOPLATIN
     Indication: SMALL CELL LUNG CANCER EXTENSIVE STAGE
     Dosage: 675.5MG/BODY, 5 TIMES (5 COURSE)
     Route: 042
     Dates: start: 20180926

REACTIONS (2)
  - Myelodysplastic syndrome [Not Recovered/Not Resolved]
  - Toxic skin eruption [Unknown]

NARRATIVE: CASE EVENT DATE: 20190417
